FAERS Safety Report 4463286-3 (Version None)
Quarter: 2004Q3

REPORT INFORMATION
  Report Type: 
  Country: None (occurrence: None)
  Receive Date: 20040930
  Receipt Date: 20040616
  Transmission Date: 20050211
  Serious: Yes (Other)
  Sender: FDA-Public Use
  Company Number: US-BRISTOL-MYERS SQUIBB COMPANY-12617916

PATIENT
  Age: 60 Year
  Sex: Male

DRUGS (3)
  1. REYATAZ [Suspect]
     Indication: HIV TEST POSITIVE
     Route: 048
  2. ZERIT [Concomitant]
  3. EPIVIR [Concomitant]

REACTIONS (3)
  - HEPATITIS [None]
  - PYREXIA [None]
  - RASH [None]
